FAERS Safety Report 5395209-7 (Version None)
Quarter: 2007Q3

REPORT INFORMATION
  Report Type: 
  Country: None (occurrence: None)
  Receive Date: 20070724
  Receipt Date: 20070723
  Transmission Date: 20080115
  Serious: Yes (Death, Other)
  Sender: FDA-Public Use
  Company Number: KR-BRISTOL-MYERS SQUIBB COMPANY-13853932

PATIENT
  Age: 11 Year
  Sex: Male

DRUGS (6)
  1. CYCLOPHOSPHAMIDE [Suspect]
     Indication: EWING'S SARCOMA
  2. DOXORUBICIN HCL [Suspect]
     Indication: EWING'S SARCOMA
  3. ETOPOSIDE [Suspect]
     Indication: EWING'S SARCOMA
  4. IFOSFAMIDE [Suspect]
     Indication: EWING'S SARCOMA
  5. VINCRISTINE [Suspect]
     Indication: EWING'S SARCOMA
  6. EPTACOG ALFA (ACTIVATED) [Concomitant]
     Indication: FACTOR VII DEFICIENCY

REACTIONS (3)
  - EPISTAXIS [None]
  - GASTROINTESTINAL HAEMORRHAGE [None]
  - HAEMATURIA [None]
